FAERS Safety Report 7549441-4 (Version None)
Quarter: 2011Q2

REPORT INFORMATION
  Report Type: 
  Country: None (occurrence: None)
  Receive Date: 20110615
  Receipt Date: 20040819
  Transmission Date: 20111010
  Serious: Yes (Hospitalization, Disabling)
  Sender: FDA-Public Use
  Company Number: PHFR2004GB02683

PATIENT
  Sex: Male

DRUGS (4)
  1. CLOZAPINE [Suspect]
     Indication: SCHIZOPHRENIA
     Route: 048
     Dates: start: 20020805
  2. ZOPICLONE [Concomitant]
     Dosage: 7.5 MG, QD
     Route: 048
  3. LACTULOSE [Concomitant]
     Indication: CONSTIPATION
     Dosage: 10 ML, QD
     Route: 048
  4. VALPROATE SODIUM [Concomitant]
     Indication: EPILEPSY
     Dosage: 1500 MG, QD
     Route: 048

REACTIONS (8)
  - DIABETIC HYPEROSMOLAR COMA [None]
  - TYPE 1 DIABETES MELLITUS [None]
  - THIRST [None]
  - VOMITING [None]
  - HEADACHE [None]
  - BLOOD GLUCOSE ABNORMAL [None]
  - DIZZINESS [None]
  - FATIGUE [None]
